FAERS Safety Report 11812837 (Version 1)
Quarter: 2015Q4

REPORT INFORMATION
  Report Type: Spontaneous
  Country: DE (occurrence: DE)
  Receive Date: 20151209
  Receipt Date: 20151209
  Transmission Date: 20160305
  Serious: Yes (Other)
  Sender: FDA-Public Use
  Company Number: DE-SUN PHARMACEUTICAL INDUSTRIES LTD-2015RR-107186

PATIENT

DRUGS (5)
  1. MONURIL 3000 [Concomitant]
     Indication: URINARY TRACT INFECTION
     Dosage: 3000 MG, DAILY; 10-11 GESTATIONAL WEEK
     Route: 064
  2. SERTRALINE [Suspect]
     Active Substance: SERTRALINE HYDROCHLORIDE
     Indication: DEPRESSION
     Dosage: 50 MG, BID; 0-40 GESTATIONAL WEEK
     Route: 064
     Dates: start: 20140805, end: 20150512
  3. FEMIBION SCHWANGERSCHAFT 1 [Concomitant]
     Indication: PROPHYLAXIS OF NEURAL TUBE DEFECT
     Dosage: 0.8 MG, DAILY; 0-40 GESTATIONAL WEEK
     Route: 064
     Dates: start: 20140805, end: 20150512
  4. CLOTRIMAZOLE. [Concomitant]
     Active Substance: CLOTRIMAZOLE
     Indication: VULVOVAGINAL MYCOTIC INFECTION
     Dosage: SEVERAL TIMES BETWEEN WEEK 11 AND 20
     Route: 064
  5. XANAFLU [Concomitant]
     Active Substance: INFLUENZA VIRUS VACCINE
     Indication: IMMUNISATION
     Dosage: 14.2. - 14.2. GESTATIONAL WEEK
     Route: 064
     Dates: start: 20141113, end: 20141113

REACTIONS (1)
  - Agitation neonatal [Recovered/Resolved]
